FAERS Safety Report 21663709 (Version 3)
Quarter: 2022Q4

REPORT INFORMATION
  Report Type: Other
  Country: MX (occurrence: None)
  Receive Date: 20221130
  Receipt Date: 20221220
  Transmission Date: 20230112
  Serious: Yes (Other)
  Sender: FDA-Public Use
  Company Number: MX-ROCHE-3226764

PATIENT
  Sex: Male
  Weight: 42 kg

DRUGS (3)
  1. TOCILIZUMAB [Suspect]
     Active Substance: TOCILIZUMAB
     Indication: Rheumatoid arthritis
     Dosage: TOCILIZUMAB VIAL OF 200MG/10ML
     Route: 042
     Dates: start: 20221019
  2. RITUXIMAB [Suspect]
     Active Substance: RITUXIMAB
     Indication: Encephalitis autoimmune
     Dosage: DOSE WAS UNKNOWN
     Route: 042
     Dates: start: 2020, end: 202112
  3. AMISULPRIDE [Concomitant]
     Active Substance: AMISULPRIDE

REACTIONS (9)
  - Pneumonia [Recovering/Resolving]
  - Skin discolouration [Recovering/Resolving]
  - Therapeutic response unexpected [Unknown]
  - Encephalitis [Unknown]
  - Pneumonia [Unknown]
  - COVID-19 [Recovering/Resolving]
  - Pharyngitis [Recovering/Resolving]
  - Pyrexia [Recovering/Resolving]
  - Off label use [Unknown]

NARRATIVE: CASE EVENT DATE: 20210101
